FAERS Safety Report 8560926-4 (Version None)
Quarter: 2012Q3

REPORT INFORMATION
  Report Type: 
  Country: None (occurrence: None)
  Receive Date: 20120802
  Receipt Date: 20120724
  Transmission Date: 20120928
  Serious: Yes (Other)
  Sender: FDA-Public Use
  Company Number: CA-ELI_LILLY_AND_COMPANY-CA201207001099

PATIENT
  Age: 72 Year
  Sex: Female
  Weight: 74.83 kg

DRUGS (23)
  1. LESCOL [Concomitant]
  2. METFORMIN HYDROCHLORIDE [Concomitant]
  3. VITAMIN B-12 [Concomitant]
  4. NOVOLIN N [Concomitant]
     Dosage: 10 U, UNK
     Route: 058
  5. MAGNESIUM [Concomitant]
  6. RIVASA [Concomitant]
  7. FORTEO [Suspect]
     Indication: OSTEOPOROSIS
     Dosage: 20 UG, UNK
     Route: 058
     Dates: start: 20120321
  8. LORAZEPAM [Concomitant]
  9. METOPROLOL TARTRATE [Concomitant]
  10. AMLODIPINE [Concomitant]
  11. COUMADIN [Concomitant]
  12. ERYTHROMYCIN [Concomitant]
     Route: 061
  13. DOCUSATE SODIUM [Concomitant]
  14. PANTOPRAZOLE [Concomitant]
  15. GABAPENTIN [Concomitant]
  16. RHO-NITRO PUMPSPRAY [Concomitant]
  17. RAMIPRIL [Concomitant]
  18. ACETAMINOPHEN [Concomitant]
  19. LASIX [Concomitant]
  20. BETADERM [Concomitant]
     Route: 061
  21. PAROXETINE [Concomitant]
  22. D-TABS [Concomitant]
  23. CALCIUM [Concomitant]

REACTIONS (3)
  - POSTOPERATIVE WOUND INFECTION [None]
  - WOUND INFECTION STAPHYLOCOCCAL [None]
  - FRACTURE DELAYED UNION [None]
